FAERS Safety Report 11151969 (Version 1)
Quarter: 2015Q2

REPORT INFORMATION
  Report Type: Spontaneous
  Country: US (occurrence: US)
  Receive Date: 20150601
  Receipt Date: 20150601
  Transmission Date: 20150821
  Serious: Yes (Other)
  Sender: FDA-Public Use
  Company Number: US-PFIZER INC-2015181325

PATIENT
  Age: 91 Year
  Sex: Female
  Weight: 56 kg

DRUGS (2)
  1. XANAX [Suspect]
     Active Substance: ALPRAZOLAM
     Indication: SLEEP DISORDER
     Dosage: 0.25 MG, UNK
     Dates: start: 200901, end: 200903
  2. XANAX [Suspect]
     Active Substance: ALPRAZOLAM
     Dosage: 0.5 MG, UNK
     Dates: start: 20121217

REACTIONS (3)
  - Limb discomfort [Recovering/Resolving]
  - Hypoaesthesia [Unknown]
  - Paralysis [Unknown]

NARRATIVE: CASE EVENT DATE: 201505
